FAERS Safety Report 24878934 (Version 1)
Quarter: 2025Q1

REPORT INFORMATION
  Report Type: Spontaneous
  Country: US (occurrence: US)
  Receive Date: 20250123
  Receipt Date: 20250123
  Transmission Date: 20250409
  Serious: No
  Sender: CATALYST PHARMA
  Company Number: US-CATALYST PHARMACEUTICALS, INC-US-CATA-24-00105

PATIENT
  Age: 77 Year
  Sex: Female
  Weight: 57.143 kg

DRUGS (4)
  1. FIRDAPSE [Suspect]
     Active Substance: AMIFAMPRIDINE PHOSPHATE
     Indication: Myasthenic syndrome
     Dosage: HALF A TABLET TWICE DAILY FOR 4 DAYS
     Route: 048
     Dates: start: 20240125, end: 20240128
  2. FIRDAPSE [Suspect]
     Active Substance: AMIFAMPRIDINE PHOSPHATE
     Dosage: ONE TABLET TWICE DAILY
     Route: 048
     Dates: start: 20240129, end: 20240208
  3. DEMANNOSE [Concomitant]
     Active Substance: DEMANNOSE
     Indication: Cystitis
     Route: 065
  4. HYDROCODONE [Concomitant]
     Active Substance: HYDROCODONE
     Indication: Bronchiectasis
     Route: 065

REACTIONS (4)
  - Myalgia [Not Recovered/Not Resolved]
  - Abdominal pain [Unknown]
  - Muscle spasms [Not Recovered/Not Resolved]
  - Constipation [Recovered/Resolved]

NARRATIVE: CASE EVENT DATE: 20240101
